FAERS Safety Report 13756537 (Version 4)
Quarter: 2017Q4

REPORT INFORMATION
  Report Type: Report from Study
  Country: US (occurrence: BR)
  Receive Date: 20170714
  Receipt Date: 20171006
  Transmission Date: 20180320
  Serious: Yes (Other)
  Sender: FDA-Public Use
  Company Number: US-SUNOVION-2017SUN003057

PATIENT
  Sex: Male
  Weight: 95 kg

DRUGS (2)
  1. INDACATEROL AND GLYCOPYRROLATE [Suspect]
     Active Substance: GLYCOPYRROLATE\INDACATEROL MALEATE
     Dosage: 1 DF (110MCG + 50MCG), QD
     Route: 055
  2. INDACATEROL AND GLYCOPYRROLATE [Suspect]
     Active Substance: GLYCOPYRROLATE\INDACATEROL MALEATE
     Indication: CHRONIC OBSTRUCTIVE PULMONARY DISEASE
     Dosage: 1 DF (110MCG + 50MCG), QD
     Route: 055

REACTIONS (3)
  - Dry mouth [Unknown]
  - Weight increased [Unknown]
  - Choking [Unknown]
